FAERS Safety Report 4733413-9 (Version None)
Quarter: 2005Q3

REPORT INFORMATION
  Report Type: 
  Country: None (occurrence: None)
  Receive Date: 20050729
  Receipt Date: 20050718
  Transmission Date: 20060218
  Serious: No
  Sender: FDA-Public Use
  Company Number: 2005-125176-NL

PATIENT
  Age: 45 Year
  Sex: Female

DRUGS (3)
  1. MIRTAZAPINE [Suspect]
     Indication: DEPRESSION
     Dosage: 45 MG QD ORAL
     Route: 048
     Dates: start: 20031230
  2. VENLAFAXINE HCL [Suspect]
     Indication: DEPRESSION
     Dosage: 225 MG QD/150 MG QD ORAL
     Route: 048
     Dates: start: 20030201, end: 20030307
  3. VENLAFAXINE HCL [Suspect]
     Indication: DEPRESSION
     Dosage: 225 MG QD/150 MG QD ORAL
     Route: 048
     Dates: start: 20030303

REACTIONS (2)
  - ATRIAL FIBRILLATION [None]
  - STRESS [None]
